FAERS Safety Report 21719208 (Version 1)
Quarter: 2022Q4

REPORT INFORMATION
  Report Type: Spontaneous
  Country: NL (occurrence: NL)
  Receive Date: 20221213
  Receipt Date: 20221213
  Transmission Date: 20230113
  Serious: Yes (Life-Threatening, Hospitalization, Other)
  Sender: FDA-Public Use
  Company Number: NL-BAYER-2022A085878

PATIENT
  Age: 70 Year
  Sex: Male
  Weight: 75 kg

DRUGS (4)
  1. ASPIRIN [Suspect]
     Active Substance: ASPIRIN
     Indication: Product used for unknown indication
     Dosage: 30 GRAM (1 TOTAL)
     Route: 048
     Dates: start: 20211002
  2. ASPIRIN [Suspect]
     Active Substance: ASPIRIN
     Dosage: 60 DOSAGE FORM (TOTAL)
     Route: 048
  3. ACETAMINOPHEN [Suspect]
     Active Substance: ACETAMINOPHEN
     Indication: Product used for unknown indication
     Dosage: 35 GRAM (TOTAL)
     Route: 048
  4. ACETAMINOPHEN [Suspect]
     Active Substance: ACETAMINOPHEN
     Dosage: 70 DOSAGE FORM (TOTAL) (467 MG/KG)
     Route: 048

REACTIONS (14)
  - Respiratory alkalosis [Recovered/Resolved]
  - Hyperchloraemia [Recovered/Resolved]
  - Acute kidney injury [Recovered/Resolved]
  - Metabolic acidosis [Recovered/Resolved]
  - Hyperventilation [Recovered/Resolved]
  - Depressed level of consciousness [Recovered/Resolved]
  - Overdose [Unknown]
  - Toxicity to various agents [Recovered/Resolved]
  - Renal failure [Recovering/Resolving]
  - Nervous system disorder [Recovering/Resolving]
  - Analgesic drug level increased [Unknown]
  - Nephropathy toxic [Unknown]
  - Neurological symptom [Unknown]
  - Blood gases [Unknown]

NARRATIVE: CASE EVENT DATE: 20211003
